FAERS Safety Report 6783956-1 (Version None)
Quarter: 2010Q2

REPORT INFORMATION
  Report Type: 
  Country: None (occurrence: None)
  Receive Date: 20100622
  Receipt Date: 20090605
  Transmission Date: 20101027
  Serious: No
  Sender: FDA-Public Use
  Company Number: US-BRISTOL-MYERS SQUIBB COMPANY-14669337

PATIENT

DRUGS (1)
  1. CARBIDOPA + LEVODOPA [Suspect]
     Route: 048

REACTIONS (1)
  - THERAPEUTIC RESPONSE DECREASED [None]
